FAERS Safety Report 21836744 (Version 2)
Quarter: 2024Q2

REPORT INFORMATION
  Report Type: Spontaneous
  Country: US (occurrence: US)
  Receive Date: 20230109
  Receipt Date: 20240429
  Transmission Date: 20240716
  Serious: Yes (Other)
  Sender: FDA-Public Use
  Company Number: US-SANOFI-01430336

PATIENT
  Age: 87 Year
  Sex: Female

DRUGS (2)
  1. LANTUS [Suspect]
     Active Substance: INSULIN GLARGINE
     Indication: Type 2 diabetes mellitus
     Dosage: 20 U, QD
  2. LANTUS [Suspect]
     Active Substance: INSULIN GLARGINE
     Dosage: 25 IU, QD

REACTIONS (6)
  - Cerebrovascular accident [Unknown]
  - Blindness [Unknown]
  - Tremor [Unknown]
  - Device issue [Unknown]
  - Depressed mood [Unknown]
  - Visual impairment [Unknown]
